FAERS Safety Report 4428468-5 (Version None)
Quarter: 2004Q3

REPORT INFORMATION
  Report Type: 
  Country: None (occurrence: None)
  Receive Date: 20040816
  Receipt Date: 20040811
  Transmission Date: 20050211
  Serious: Yes (Hospitalization)
  Sender: FDA-Public Use
  Company Number: VISP-PR-04075-0259

PATIENT
  Sex: Male

DRUGS (8)
  1. VISIPAQUE [Suspect]
     Indication: CARDIAC DISORDER
     Dosage: 210 ML, SINGLE DOSE, I.A.
     Route: 013
     Dates: start: 20040722, end: 20040722
  2. INSULIN [Concomitant]
  3. AMITRIPTYLINE HCL (ELAVIL) [Concomitant]
  4. LASIX [Concomitant]
  5. PLAVIX [Concomitant]
  6. LIPITOR [Concomitant]
  7. TENORMIN [Concomitant]
  8. HEPARIN [Concomitant]

REACTIONS (1)
  - PANCREATITIS [None]
